FAERS Safety Report 9377495 (Version 2)
Quarter: 2013Q3

REPORT INFORMATION
  Report Type: Spontaneous
  Country: JP (occurrence: JP)
  Receive Date: 20130701
  Receipt Date: 20130730
  Transmission Date: 20140515
  Serious: Yes (Other)
  Sender: FDA-Public Use
  Company Number: JP-PFIZER INC-2013190221

PATIENT
  Age: 78 Year
  Sex: Male

DRUGS (9)
  1. LIPITOR [Suspect]
     Indication: HYPERCHOLESTEROLAEMIA
     Dosage: 10 MG, DAILY
     Route: 048
  2. AMARYL [Concomitant]
     Dosage: UNK
  3. NORVASC [Concomitant]
     Dosage: UNK
  4. IRBETAN [Concomitant]
     Dosage: UNK
  5. CARDENALIN [Concomitant]
     Dosage: UNK
  6. BAYASPIRIN [Concomitant]
     Dosage: UNK
  7. MUCOSTA [Concomitant]
     Dosage: UNK
  8. BASEN [Concomitant]
     Dosage: UNK
  9. ZETIA [Concomitant]
     Dosage: UNK

REACTIONS (2)
  - Ascites [Recovered/Resolved]
  - Generalised oedema [Recovered/Resolved]
